FAERS Safety Report 11761063 (Version 1)
Quarter: 2015Q4

REPORT INFORMATION
  Report Type: Spontaneous
  Country: US (occurrence: US)
  Receive Date: 20151120
  Receipt Date: 20151120
  Transmission Date: 20160304
  Serious: No
  Sender: FDA-Public Use
  Company Number: US-ELI_LILLY_AND_COMPANY-US201212002215

PATIENT
  Sex: Male

DRUGS (2)
  1. FORTEO [Suspect]
     Active Substance: TERIPARATIDE
     Indication: OSTEOPOROSIS
     Dosage: 20 UG, QD
     Dates: start: 201206
  2. METFORMIN [Concomitant]
     Active Substance: METFORMIN HYDROCHLORIDE
     Indication: DIABETES MELLITUS

REACTIONS (11)
  - Pain in extremity [Unknown]
  - Erythema [Unknown]
  - Chest pain [Unknown]
  - Arthralgia [Unknown]
  - Gait disturbance [Unknown]
  - Diarrhoea [Unknown]
  - Pain [Unknown]
  - Back pain [Unknown]
  - Sleep apnoea syndrome [Unknown]
  - Arthropathy [Recovering/Resolving]
  - Hypertension [Unknown]
